FAERS Safety Report 6487249-1 (Version None)
Quarter: 2009Q4

REPORT INFORMATION
  Report Type: 
  Country: None (occurrence: None)
  Receive Date: 20091210
  Receipt Date: 20091204
  Transmission Date: 20100525
  Serious: Yes (Other)
  Sender: FDA-Public Use
  Company Number: FR-JNJFOC-20091202339

PATIENT
  Age: 9 Year
  Sex: Male

DRUGS (1)
  1. CONCERTA [Suspect]
     Indication: PSYCHOMOTOR HYPERACTIVITY

REACTIONS (1)
  - ARRHYTHMIA [None]
